FAERS Safety Report 23772527 (Version 2)
Quarter: 2024Q3

REPORT INFORMATION
  Report Type: Spontaneous
  Country: US (occurrence: US)
  Receive Date: 20240423
  Receipt Date: 20240725
  Transmission Date: 20241017
  Serious: Yes (Hospitalization)
  Sender: AUROBINDO
  Company Number: US-AUROBINDO-AUR-APL-2024-018109

PATIENT
  Age: 80 Year
  Sex: Male

DRUGS (5)
  1. CARBOPLATIN [Suspect]
     Active Substance: CARBOPLATIN
     Indication: Bladder cancer stage II
     Dosage: UNK
     Route: 065
  2. GEMCITABINE [Suspect]
     Active Substance: GEMCITABINE
     Indication: Bladder cancer stage II
     Dosage: UNK
     Route: 065
  3. PEGYLATED GRANULOCYTE COLONY-STIMULATING FACTOR [Suspect]
     Active Substance: PEGYLATED GRANULOCYTE COLONY-STIMULATING FACTOR
     Indication: Bladder cancer stage II
     Dosage: 6 MILLIGRAM
     Route: 065
  4. NIVOLUMAB [Concomitant]
     Active Substance: NIVOLUMAB
     Indication: Bladder cancer stage II
     Dosage: UNK
     Route: 065
  5. APIXABAN [Concomitant]
     Active Substance: APIXABAN
     Indication: Atrial fibrillation
     Dosage: UNK
     Route: 065

REACTIONS (1)
  - Myeloblast count increased [Recovered/Resolved]
